FAERS Safety Report 7544795-7 (Version None)
Quarter: 2011Q2

REPORT INFORMATION
  Report Type: 
  Country: None (occurrence: None)
  Receive Date: 20110614
  Receipt Date: 20110602
  Transmission Date: 20111010
  Serious: Yes (Life-Threatening, Other)
  Sender: FDA-Public Use
  Company Number: US-BAYER-2011-029311

PATIENT
  Sex: Female
  Weight: 74.83 kg

DRUGS (2)
  1. AVELOX [Suspect]
     Indication: SINUSITIS
     Dosage: 400 MG, ONCE
  2. PREVACID [Concomitant]
     Indication: GASTROOESOPHAGEAL REFLUX DISEASE

REACTIONS (6)
  - NAUSEA [None]
  - VOMITING [None]
  - HYPOTENSION [None]
  - ANAPHYLACTIC REACTION [None]
  - DIARRHOEA [None]
  - URTICARIA [None]
